FAERS Safety Report 5584699-2 (Version None)
Quarter: 2008Q1

REPORT INFORMATION
  Report Type: 
  Country: None (occurrence: None)
  Receive Date: 20080108
  Receipt Date: 20071227
  Transmission Date: 20080703
  Serious: Yes (Disabling)
  Sender: FDA-Public Use
  Company Number: PT-PFIZER INC-2007101394

PATIENT
  Sex: Female

DRUGS (2)
  1. CHANTIX [Suspect]
     Indication: SMOKING CESSATION THERAPY
     Route: 048
     Dates: start: 20071101, end: 20071225
  2. ANTIDEPRESSANTS [Concomitant]

REACTIONS (5)
  - BALANCE DISORDER [None]
  - HEAD DISCOMFORT [None]
  - INSOMNIA [None]
  - MALAISE [None]
  - NAUSEA [None]
